FAERS Safety Report 8307582-8 (Version None)
Quarter: 2012Q2

REPORT INFORMATION
  Report Type: 
  Country: None (occurrence: None)
  Receive Date: 20120424
  Receipt Date: 20120411
  Transmission Date: 20120825
  Serious: Yes (Hospitalization, Other)
  Sender: FDA-Public Use
  Company Number: IT-CELGENEUS-083-22393-12033362

PATIENT
  Sex: Male

DRUGS (3)
  1. ISTODAX [Suspect]
     Route: 041
     Dates: start: 20120222, end: 20120322
  2. PREDNISONE TAB [Concomitant]
     Dosage: 25 MILLIGRAM
     Route: 065
  3. BACTRIM [Concomitant]
     Route: 048

REACTIONS (4)
  - PYREXIA [None]
  - PULMONARY EMBOLISM [None]
  - INTRACARDIAC THROMBUS [None]
  - MYCOSIS FUNGOIDES STAGE IV [None]
